FAERS Safety Report 5018135-1 (Version None)
Quarter: 2006Q2

REPORT INFORMATION
  Report Type: 
  Country: None (occurrence: None)
  Receive Date: 20060530
  Receipt Date: 20050203
  Transmission Date: 20061013
  Serious: Yes (Hospitalization)
  Sender: FDA-Public Use
  Company Number: 2005025572

PATIENT
  Age: 80 Year
  Sex: Male
  Weight: 67.1 kg

DRUGS (1)
  1. PREGABALIN (LYRICA) [Suspect]
     Indication: PHANTOM PAIN
     Dosage: 150 MG, ORAL
     Route: 048
     Dates: start: 20050115, end: 20050131

REACTIONS (1)
  - HAEMOTHORAX [None]
